FAERS Safety Report 11706882 (Version 2)
Quarter: 2015Q4

REPORT INFORMATION
  Report Type: Spontaneous
  Country: US (occurrence: US)
  Receive Date: 20151106
  Receipt Date: 20151230
  Transmission Date: 20160304
  Serious: No
  Sender: FDA-Public Use
  Company Number: US-PFIZER INC-2015355571

PATIENT
  Age: 9 Year
  Sex: Female
  Weight: 24 kg

DRUGS (1)
  1. CHILDRENS ADVIL [Suspect]
     Active Substance: IBUPROFEN
     Indication: HEADACHE
     Dosage: 2 TEASPOONS, UNK
     Route: 048
     Dates: start: 20151018, end: 20151018

REACTIONS (4)
  - Product taste abnormal [Recovered/Resolved]
  - Dysgeusia [Recovered/Resolved]
  - Product odour abnormal [Recovered/Resolved]
  - Retching [Recovered/Resolved]

NARRATIVE: CASE EVENT DATE: 20151018
